FAERS Safety Report 9175730 (Version 1)
Quarter: 2012Q4

REPORT INFORMATION
  Report Type: 
  Country: ES (occurrence: ES)
  Receive Date: 20120913
  Receipt Date: 20120913
  Transmission Date: 20130627
  Serious: Yes (Hospitalization, Other)
  Sender: FDA-Public Use
  Company Number: ES-RB-044564-12

PATIENT
  Sex: Female

DRUGS (2)
  1. BUPRENORPHINE/NALOXONE [Suspect]
     Indication: DRUG DEPENDENCE
     Dosage: Dosing details not provided
     Route: 065
  2. DULOXETINE [Concomitant]
     Indication: DEPRESSION
     Dosage: Dosing details unknown
     Route: 065

REACTIONS (2)
  - Personality disorder [Unknown]
  - Drug dependence [Recovered/Resolved]
